FAERS Safety Report 20697285 (Version 1)
Quarter: 2022Q2

REPORT INFORMATION
  Report Type: Report from Study
  Country: IN (occurrence: IN)
  Receive Date: 20220411
  Receipt Date: 20220411
  Transmission Date: 20220721
  Serious: Yes (Hospitalization, Other)
  Sender: FDA-Public Use
  Company Number: IN-NOVARTISPH-PHHY2019IN011985

PATIENT
  Age: 33 Year
  Sex: Male

DRUGS (8)
  1. SIMULECT [Suspect]
     Active Substance: BASILIXIMAB
     Indication: Renal transplant
     Dosage: 20 MG, UNK
     Route: 042
     Dates: start: 20181201, end: 20181205
  2. SIMULECT [Suspect]
     Active Substance: BASILIXIMAB
     Dosage: 20 MG, UNK
     Route: 042
     Dates: start: 20181205
  3. PREDNISOLONE [Concomitant]
     Active Substance: PREDNISOLONE
     Indication: Product used for unknown indication
     Dosage: 20 MG, QD (8 AM)
     Route: 065
  4. PREDNISOLONE [Concomitant]
     Active Substance: PREDNISOLONE
     Indication: Product used for unknown indication
     Dosage: (LMG/KG/ DAY IN TAPERING DOSE)
     Route: 048
  5. METHYLPREDNISOLONE [Concomitant]
     Active Substance: METHYLPREDNISOLONE
     Indication: Product used for unknown indication
     Dosage: GIVEN A TIME OF ANASTOMOSIS AND WAS CONTINUED FOR TWO DAYS
     Route: 065
  6. PANTOCID [Concomitant]
     Indication: Product used for unknown indication
     Dosage: 40 MG, QD
     Route: 065
  7. TACROLIMUS [Concomitant]
     Active Substance: TACROLIMUS
     Indication: Product used for unknown indication
     Dosage: (IN LOW DOSE ON DAY OF SURGERY)
     Route: 065
  8. ARKAMIN [Concomitant]
     Indication: Product used for unknown indication
     Dosage: 0.1 MG (2 TABS, TDS)
     Route: 065

REACTIONS (7)
  - Kidney transplant rejection [Recovering/Resolving]
  - Delayed graft function [Unknown]
  - Thrombotic microangiopathy [Unknown]
  - Ascites [Unknown]
  - Renal tubular injury [Unknown]
  - Glomerulonephritis membranoproliferative [Unknown]
  - Pleural effusion [Unknown]

NARRATIVE: CASE EVENT DATE: 20181210
